FAERS Safety Report 7508229-0 (Version None)
Quarter: 2011Q2

REPORT INFORMATION
  Report Type: 
  Country: None (occurrence: None)
  Receive Date: 20110527
  Receipt Date: 20110520
  Transmission Date: 20111010
  Serious: Yes (Hospitalization)
  Sender: FDA-Public Use
  Company Number: JP-ASTELLAS-2010JP007444

PATIENT
  Age: 38 Year
  Sex: Female

DRUGS (10)
  1. ENBREL [Suspect]
     Indication: RHEUMATOID ARTHRITIS
     Dosage: 25 MG, WEEKLY
     Route: 058
     Dates: start: 20080509, end: 20080703
  2. ROCALTROL [Concomitant]
     Dosage: UNK
     Route: 065
     Dates: end: 20100512
  3. METHOTREXATE [Concomitant]
     Dosage: UNK
     Route: 065
     Dates: start: 20080325, end: 20081007
  4. PROGRAF [Suspect]
     Route: 048
  5. DEPAS [Concomitant]
     Dosage: UNK
     Route: 065
     Dates: end: 20100512
  6. ENBREL [Suspect]
     Dosage: 25 MG, WEEKLY
     Route: 058
     Dates: start: 20080710, end: 20100505
  7. PREDNISOLONE [Concomitant]
     Route: 065
  8. PROGRAF [Suspect]
     Indication: RHEUMATOID ARTHRITIS
     Dosage: 1 MG, UID/QD
     Route: 048
     Dates: start: 20081008, end: 20100512
  9. PREDNISOLONE [Concomitant]
     Dosage: 1 MG, UNKNOWN/D
     Route: 065
  10. PREDNISOLONE [Concomitant]
     Dosage: 5 MG, UNKNOWN/D
     Route: 065
     Dates: start: 20100520

REACTIONS (1)
  - HAEMOPTYSIS [None]
